FAERS Safety Report 8622250 (Version 3)
Quarter: 2013Q4

REPORT INFORMATION
  Report Type: Spontaneous
  Country: US (occurrence: US)
  Receive Date: 20120619
  Receipt Date: 20131223
  Transmission Date: 20140711
  Serious: Yes (Other)
  Sender: FDA-Public Use
  Company Number: US-ROCHE-1078151

PATIENT
  Age: 13 Year
  Sex: Female

DRUGS (1)
  1. ACCUTANE [Suspect]
     Indication: ACNE
     Dosage: 20 MG IN MORNING AND 40 MG AT NIGHT
     Route: 048
     Dates: start: 20030102, end: 20040315

REACTIONS (7)
  - Colitis ulcerative [Unknown]
  - Inflammatory bowel disease [Unknown]
  - Injury [Unknown]
  - Xerosis [Unknown]
  - Cheilitis [Unknown]
  - Irritable bowel syndrome [Unknown]
  - Acne [Recovering/Resolving]
